FAERS Safety Report 9604270 (Version 2)
Quarter: 2013Q4

REPORT INFORMATION
  Report Type: Report from Study
  Country: BR (occurrence: BR)
  Receive Date: 20131008
  Receipt Date: 20131008
  Transmission Date: 20140711
  Serious: Yes (Hospitalization, Other)
  Sender: FDA-Public Use
  Company Number: PHHY2013BR091389

PATIENT
  Sex: Female

DRUGS (3)
  1. DIOVAN TRIPLE [Suspect]
     Indication: HYPERTENSION
     Dosage: 1 DF, (160MG VALS/10MG AMLO/12.5 MG HCT) BID
     Route: 048
  2. DIOVAN TRIPLE [Suspect]
     Dosage: 1 DF, (160MG VALS/10MG AMLO/12.5 MG HCT) QD
  3. DIOVAN HCT [Suspect]
     Indication: HYPERTENSION
     Dosage: 1 DF (160MG VALSAR/12.5MG HCT), UNK
     Route: 048

REACTIONS (3)
  - Infarction [Recovered/Resolved]
  - Swelling [Recovered/Resolved]
  - Renal disorder [Not Recovered/Not Resolved]
